FAERS Safety Report 15288695 (Version 1)
Quarter: 2018Q3

REPORT INFORMATION
  Report Type: Spontaneous
  Country: US (occurrence: US)
  Receive Date: 20180817
  Receipt Date: 20180817
  Transmission Date: 20181010
  Serious: No
  Sender: FDA-Public Use
  Company Number: US-LEXICON PHARMACEUTICALS, INC-18-1606-00983

PATIENT
  Age: 39 Year
  Sex: Female

DRUGS (3)
  1. OCTREOTIDE ACETATE. [Concomitant]
     Active Substance: OCTREOTIDE ACETATE
     Dosage: 100 MCG/ML
  2. TELOTRISTAT ETHYL [Suspect]
     Active Substance: TELOTRISTAT ETHYL
     Dosage: TAKES TWICE DAILY AND 1?2 DAYS PER WEEK TAKES XERMELO ONLY ONCE DAILY AFTER SHE EXPERIENCES ABDOMINA
     Route: 048
     Dates: start: 2018
  3. TELOTRISTAT ETHYL [Suspect]
     Active Substance: TELOTRISTAT ETHYL
     Indication: CARCINOID SYNDROME
     Route: 048
     Dates: start: 20180612, end: 2018

REACTIONS (2)
  - Abdominal pain [Recovering/Resolving]
  - Chest pain [Recovering/Resolving]

NARRATIVE: CASE EVENT DATE: 201806
